FAERS Safety Report 11021091 (Version 3)
Quarter: 2015Q2

REPORT INFORMATION
  Report Type: Spontaneous
  Country: US (occurrence: US)
  Receive Date: 20150413
  Receipt Date: 20150520
  Transmission Date: 20150821
  Serious: Yes (Other)
  Sender: FDA-Public Use
  Company Number: US-SUN PHARMACEUTICAL INDUSTRIES LTD-2015US-95096

PATIENT
  Age: 27 Year
  Sex: Female

DRUGS (2)
  1. ORTHOTRICYCLEN LO [Concomitant]
     Indication: PRODUCT USED FOR UNKNOWN INDICATION
     Dosage: UNK
     Route: 065
     Dates: start: 20140110
  2. ABSORICA [Suspect]
     Active Substance: ISOTRETINOIN
     Indication: PRODUCT USED FOR UNKNOWN INDICATION
     Dosage: 30 MG, BID
     Route: 065
     Dates: start: 20150126, end: 20150330

REACTIONS (2)
  - Exposure during pregnancy [Recovered/Resolved]
  - Selective abortion [Unknown]

NARRATIVE: CASE EVENT DATE: 20150403
